FAERS Safety Report 10628105 (Version 2)
Quarter: 2014Q4

REPORT INFORMATION
  Report Type: Spontaneous
  Country: US (occurrence: US)
  Receive Date: 20141205
  Receipt Date: 20141205
  Transmission Date: 20150529
  Serious: Yes (Other)
  Sender: FDA-Public Use
  Company Number: US-BRISTOL-MYERS SQUIBB COMPANY-21050240

PATIENT
  Age: 82 Year
  Sex: Female
  Weight: 95.24 kg

DRUGS (2)
  1. COUMADIN [Suspect]
     Active Substance: WARFARIN SODIUM
     Dates: start: 1988
  2. CELEBREX [Concomitant]
     Active Substance: CELECOXIB
     Dosage: 1DF: 2 TABLETS

REACTIONS (2)
  - Thrombosis [Unknown]
  - International normalised ratio fluctuation [Unknown]
